FAERS Safety Report 5883882-6 (Version None)
Quarter: 2008Q3

REPORT INFORMATION
  Report Type: 
  Country: None (occurrence: None)
  Receive Date: 20080915
  Receipt Date: 20080904
  Transmission Date: 20090109
  Serious: Yes (Hospitalization)
  Sender: FDA-Public Use
  Company Number: A0747387A

PATIENT
  Age: 59 Year
  Sex: Male
  Weight: 105.5 kg

DRUGS (13)
  1. AVANDIA [Suspect]
     Dosage: 4MG TWICE PER DAY
     Route: 048
     Dates: start: 20070101, end: 20070701
  2. ISORDIL [Concomitant]
  3. ULTRACET [Concomitant]
  4. AMARYL [Concomitant]
  5. ZOCOR [Concomitant]
  6. LISINOPRIL [Concomitant]
  7. CARTIA XT [Concomitant]
  8. LASIX [Concomitant]
  9. VYTORIN [Concomitant]
  10. CLONIDINE [Concomitant]
  11. LYRICA [Concomitant]
  12. NOVOLIN [Concomitant]
  13. VASOTEC [Concomitant]

REACTIONS (4)
  - CEREBROVASCULAR ACCIDENT [None]
  - INFARCTION [None]
  - MYOCARDIAL INFARCTION [None]
  - VISION BLURRED [None]
